FAERS Safety Report 10298631 (Version 2)
Quarter: 2014Q3

REPORT INFORMATION
  Report Type: Spontaneous
  Country: CN (occurrence: CN)
  Receive Date: 20140711
  Receipt Date: 20140826
  Transmission Date: 20150326
  Serious: Yes (Hospitalization)
  Sender: FDA-Public Use
  Company Number: CN-ASTRAZENECA-2014SE48783

PATIENT
  Age: 79 Year
  Sex: Male

DRUGS (5)
  1. BETALOC ZOK [Suspect]
     Active Substance: METOPROLOL SUCCINATE
     Indication: HYPERTENSION
     Route: 048
     Dates: start: 201405
  2. CHINESE TRADITIONAL MEDICINE [Suspect]
     Active Substance: UNSPECIFIED INGREDIENT
  3. COENZYME Q10 [Concomitant]
     Active Substance: UBIDECARENONE
  4. CRESTOR [Suspect]
     Active Substance: ROSUVASTATIN CALCIUM
     Indication: DISSEMINATED INTRAVASCULAR COAGULATION
     Route: 048
     Dates: start: 201405
  5. VASOREL [Concomitant]

REACTIONS (5)
  - Appetite disorder [Recovering/Resolving]
  - Dyspnoea [Recovering/Resolving]
  - Listless [Recovering/Resolving]
  - Weight decreased [Recovering/Resolving]
  - Off label use [Unknown]

NARRATIVE: CASE EVENT DATE: 201405
